FAERS Safety Report 9935324 (Version 1)
Quarter: 2014Q1

REPORT INFORMATION
  Report Type: Spontaneous
  Country: US (occurrence: US)
  Receive Date: 20140228
  Receipt Date: 20140228
  Transmission Date: 20141002
  Serious: Yes (Hospitalization, Other)
  Sender: FDA-Public Use
  Company Number: US-PFIZER INC-2014058990

PATIENT
  Sex: Male

DRUGS (3)
  1. CHANTIX [Suspect]
     Indication: SMOKING CESSATION THERAPY
     Dosage: 0.5 MG, DAILY
  2. CHANTIX [Suspect]
     Dosage: UNK
     Dates: start: 2013
  3. CHANTIX [Suspect]
     Dosage: UNK

REACTIONS (2)
  - Back disorder [Unknown]
  - Drug ineffective [Unknown]
